FAERS Safety Report 9160978 (Version 2)
Quarter: 2013Q2

REPORT INFORMATION
  Report Type: Spontaneous
  Country: US (occurrence: US)
  Receive Date: 20130313
  Receipt Date: 20130405
  Transmission Date: 20140414
  Serious: No
  Sender: FDA-Public Use
  Company Number: US-PFIZER INC-2013082126

PATIENT
  Age: 53 Year
  Sex: Male
  Weight: 81.63 kg

DRUGS (6)
  1. VANCOMYCIN HCL [Suspect]
     Indication: STAPHYLOCOCCAL INFECTION
     Dosage: UNK
     Dates: start: 201204, end: 2012
  2. VANCOMYCIN HCL [Suspect]
     Dosage: UNK
     Dates: start: 201208, end: 2012
  3. ZYVOX [Concomitant]
     Indication: STAPHYLOCOCCAL INFECTION
     Dosage: 600 MG, 2X/DAY
     Route: 042
     Dates: start: 201201, end: 2012
  4. LOPRESSOR [Concomitant]
     Indication: TACHYCARDIA
     Dosage: 12.5 MG, 2X/DAY
  5. PREVACID [Concomitant]
     Indication: GASTROOESOPHAGEAL REFLUX DISEASE
     Dosage: 30 MG, 2X/DAY
  6. TOBRAMYCIN [Concomitant]
     Indication: PSEUDOMONAS INFECTION
     Dosage: UNK

REACTIONS (1)
  - Drug ineffective [Unknown]
